FAERS Safety Report 11552970 (Version 2)
Quarter: 2015Q4

REPORT INFORMATION
  Report Type: Spontaneous
  Country: US (occurrence: US)
  Receive Date: 20150925
  Receipt Date: 20151216
  Transmission Date: 20160304
  Serious: No
  Sender: FDA-Public Use
  Company Number: US-CELGENEUS-USA-2015093286

PATIENT
  Sex: Female

DRUGS (1)
  1. OTEZLA [Suspect]
     Active Substance: APREMILAST
     Indication: PSORIATIC ARTHROPATHY
     Dosage: 60 MILLIGRAM
     Route: 048
     Dates: start: 20150305

REACTIONS (6)
  - Condition aggravated [Unknown]
  - Myalgia [Unknown]
  - Pruritus [Unknown]
  - Arthritis [Unknown]
  - Skin exfoliation [Unknown]
  - Malaise [Unknown]

NARRATIVE: CASE EVENT DATE: 2015
